FAERS Safety Report 21096430 (Version 1)
Quarter: 2022Q3

REPORT INFORMATION
  Report Type: Spontaneous
  Country: US (occurrence: None)
  Receive Date: 20220718
  Receipt Date: 20220718
  Transmission Date: 20221027
  Serious: No
  Sender: FDA-Public Use
  Company Number: None

PATIENT
  Age: 68 Year
  Sex: Male
  Weight: 97.65 kg

DRUGS (5)
  1. RYBELSUS [Suspect]
     Active Substance: SEMAGLUTIDE
     Indication: Glycosylated haemoglobin increased
     Dosage: FREQUENCY : DAILY;?
     Route: 048
  2. METFORMIN [Concomitant]
     Active Substance: METFORMIN HYDROCHLORIDE
  3. SIMVASSTATIN [Concomitant]
  4. VITAMINS [Concomitant]
     Active Substance: VITAMINS
  5. GENERIC CLARITAN [Concomitant]

REACTIONS (2)
  - Swollen tear duct [None]
  - Dry eye [None]

NARRATIVE: CASE EVENT DATE: 20220712
